FAERS Safety Report 13880405 (Version 2)
Quarter: 2017Q3

REPORT INFORMATION
  Report Type: Spontaneous
  Country: CN (occurrence: CN)
  Receive Date: 20170818
  Receipt Date: 20170818
  Transmission Date: 20171127
  Serious: Yes (Life-Threatening)
  Sender: FDA-Public Use
  Company Number: CN-BRACCO-2017CN03683

PATIENT
  Age: 54 Year
  Sex: Male

DRUGS (2)
  1. IOPAMIRO [Suspect]
     Active Substance: IOPAMIDOL
     Indication: ARTERIOGRAM LIVER
     Dosage: UNK UNK, SINGLE
     Route: 013
     Dates: start: 20170719, end: 20170719
  2. IOPAMIRO [Suspect]
     Active Substance: IOPAMIDOL
     Indication: TRANSCATHETER ARTERIAL CHEMOEMBOLISATION

REACTIONS (4)
  - Oxygen saturation immeasurable [Recovered/Resolved]
  - Pulse absent [Recovered/Resolved]
  - Unresponsive to stimuli [Recovered/Resolved]
  - Blood pressure immeasurable [Recovered/Resolved]

NARRATIVE: CASE EVENT DATE: 20170719
